APPROVED DRUG PRODUCT: LIDOCAINE HYDROCHLORIDE
Active Ingredient: LIDOCAINE HYDROCHLORIDE
Strength: 2%
Dosage Form/Route: INJECTABLE;INJECTION
Application: A219535 | Product #002 | TE Code: AP
Applicant: ANTHEA PHARMA PRIVATE LTD
Approved: Feb 6, 2026 | RLD: No | RS: No | Type: RX